FAERS Safety Report 21258308 (Version 4)
Quarter: 2023Q2

REPORT INFORMATION
  Report Type: Report from Study
  Country: US (occurrence: US)
  Receive Date: 20220826
  Receipt Date: 20230601
  Transmission Date: 20230722
  Serious: Yes (Hospitalization, Other)
  Sender: FDA-Public Use
  Company Number: US-ARGENX-2022-ARGX-US001088

PATIENT
  Age: 62 Year
  Sex: Male
  Weight: 94.059 kg

DRUGS (3)
  1. VYVGART [Suspect]
     Active Substance: EFGARTIGIMOD ALFA-FCAB
     Indication: Myasthenia gravis
     Dosage: 10 MG/KG, 1/WEEK; STRENGTH: 400 MG/20 ML
     Route: 042
     Dates: start: 20220505
  2. VYVGART [Suspect]
     Active Substance: EFGARTIGIMOD ALFA-FCAB
     Dosage: 10 MG/KG, 1/WEEK; STRENGTH: 400 MG/20 ML
     Dates: start: 20220524
  3. VYVGART [Suspect]
     Active Substance: EFGARTIGIMOD ALFA-FCAB
     Dosage: 1200MG/ 10MG/KG
     Dates: start: 20220810

REACTIONS (10)
  - Necrotising fasciitis [Recovering/Resolving]
  - Hallucination [Unknown]
  - Drug ineffective [Unknown]
  - Cellulitis [Unknown]
  - Myasthenia gravis [Unknown]
  - Pain in extremity [Unknown]
  - Peripheral swelling [Unknown]
  - Mental status changes [Unknown]
  - Gait disturbance [Unknown]
  - Skin discolouration [Unknown]

NARRATIVE: CASE EVENT DATE: 20220812
